FAERS Safety Report 16482036 (Version 1)
Quarter: 2019Q2

REPORT INFORMATION
  Report Type: Spontaneous
  Country: US (occurrence: US)
  Receive Date: 20190627
  Receipt Date: 20190627
  Transmission Date: 20190711
  Serious: No
  Sender: FDA-Public Use
  Company Number: US-SA-2019SA170479

PATIENT
  Age: 49 Year
  Sex: Male

DRUGS (1)
  1. XYZAL [Suspect]
     Active Substance: LEVOCETIRIZINE DIHYDROCHLORIDE
     Dosage: UNK UNK, QD
     Route: 065

REACTIONS (5)
  - Headache [Recovering/Resolving]
  - Throat irritation [Recovering/Resolving]
  - Tongue discolouration [Recovering/Resolving]
  - Oropharyngeal pain [Recovering/Resolving]
  - Somnolence [Recovering/Resolving]
